FAERS Safety Report 7932179 (Version 6)
Quarter: 2012Q4

REPORT INFORMATION
  Report Type: 
  Country: CA (occurrence: CA)
  Receive Date: 20110505
  Receipt Date: 20121019
  Transmission Date: 20130627
  Serious: Yes (Death, Hospitalization, Other)
  Sender: FDA-Public Use
  Company Number: PHHY2010CA56043

PATIENT
  Age: 40 Year
  Sex: Female

DRUGS (2)
  1. ZOMETA [Suspect]
     Indication: BREAST CANCER
     Dosage: 4 mg, every 6 months
     Route: 042
     Dates: start: 20100302
  2. ZOMETA [Suspect]
     Indication: METASTASES TO BONE
     Dosage: 4 mg, once in a month
     Route: 042
     Dates: end: 201203

REACTIONS (12)
  - Breast cancer metastatic [Fatal]
  - Cardiac disorder [Unknown]
  - Heart rate increased [Unknown]
  - Pleural effusion [Unknown]
  - Pericardial effusion [Unknown]
  - Neoplasm progression [Unknown]
  - Malignant neoplasm progression [Unknown]
  - Pulmonary oedema [Unknown]
  - Aspartate aminotransferase increased [Unknown]
  - Alanine aminotransferase increased [Unknown]
  - Mean cell haemoglobin decreased [Unknown]
  - White blood cell count decreased [Unknown]
